FAERS Safety Report 6520839-6 (Version None)
Quarter: 2009Q4

REPORT INFORMATION
  Report Type: 
  Country: None (occurrence: None)
  Receive Date: 20091229
  Receipt Date: 20091217
  Transmission Date: 20100525
  Serious: Yes (Other)
  Sender: FDA-Public Use
  Company Number: US-ELI_LILLY_AND_COMPANY-US200910000248

PATIENT
  Age: 45 Year
  Sex: Male
  Weight: 158.73 kg

DRUGS (10)
  1. ZYPREXA [Suspect]
     Indication: SCHIZOPHRENIA
     Dosage: 5 MG, 2/D
     Dates: start: 20081001, end: 20090901
  2. ZYPREXA [Suspect]
     Dosage: 5 MG, EACH EVENING
     Dates: start: 20081001, end: 20090901
  3. ZYPREXA [Suspect]
     Dosage: 5 MG, EACH MORNING
  4. ZYPREXA [Suspect]
     Dosage: 15 MG, EACH EVENING
  5. RISPERIDONE [Concomitant]
  6. GEODON [Concomitant]
  7. ALCOHOL [Concomitant]
  8. NICOTINE [Concomitant]
     Dates: end: 20090201
  9. CELEXA [Concomitant]
     Indication: DEPRESSION
     Dosage: 407 MG, UNK
  10. ANTIPSYCHOTICS [Concomitant]

REACTIONS (6)
  - BLOOD GLUCOSE INCREASED [None]
  - BLOOD TRIGLYCERIDES INCREASED [None]
  - DECREASED ACTIVITY [None]
  - GLYCOSYLATED HAEMOGLOBIN INCREASED [None]
  - HYPERPHAGIA [None]
  - WEIGHT INCREASED [None]
